FAERS Safety Report 5787544-5 (Version None)
Quarter: 2008Q2

REPORT INFORMATION
  Report Type: 
  Country: None (occurrence: None)
  Receive Date: 20080625
  Receipt Date: 20080528
  Transmission Date: 20081010
  Serious: No
  Sender: FDA-Public Use
  Company Number: US-ASTRAZENECA-2007UW22583

PATIENT
  Age: 77 Year
  Sex: Female
  Weight: 53.5 kg

DRUGS (9)
  1. PULMICORT RESPULES [Suspect]
     Indication: ASTHMA
     Route: 055
  2. PULMICORT RESPULES [Suspect]
     Indication: CHRONIC OBSTRUCTIVE PULMONARY DISEASE
     Route: 055
  3. XOPENEX [Concomitant]
  4. THEOPHYLLINE [Concomitant]
  5. BACLOFEN [Concomitant]
  6. SINGULAIR [Concomitant]
  7. CAPOTEN [Concomitant]
  8. ASPIRIN [Concomitant]
  9. SPIRIVA [Concomitant]

REACTIONS (4)
  - CATARACT [None]
  - DRUG EFFECT DECREASED [None]
  - DYSPNOEA [None]
  - EYE INFLAMMATION [None]
